FAERS Safety Report 19407988 (Version 1)
Quarter: 2021Q2

REPORT INFORMATION
  Report Type: Spontaneous
  Country: GB (occurrence: GB)
  Receive Date: 20210611
  Receipt Date: 20210611
  Transmission Date: 20210717
  Serious: Yes (Other)
  Sender: FDA-Public Use
  Company Number: GB-TEVA-2021-GB-1918872

PATIENT
  Sex: Female

DRUGS (1)
  1. CETIRIZINE [Suspect]
     Active Substance: CETIRIZINE HYDROCHLORIDE
     Dosage: 10 MG
     Route: 065

REACTIONS (4)
  - Wheezing [Recovering/Resolving]
  - Swelling [Recovered/Resolved]
  - Malaise [Recovering/Resolving]
  - Chest discomfort [Recovering/Resolving]
